FAERS Safety Report 12591056 (Version 2)
Quarter: 2016Q3

REPORT INFORMATION
  Report Type: Spontaneous
  Country: US (occurrence: US)
  Receive Date: 20160726
  Receipt Date: 20160726
  Transmission Date: 20161109
  Serious: No
  Sender: FDA-Public Use
  Company Number: US-UNITED THERAPEUTICS-UNT-2015-015705

PATIENT
  Age: 62 Year
  Sex: Male
  Weight: 89.8 kg

DRUGS (4)
  1. REMODULIN [Suspect]
     Active Substance: TREPROSTINIL
     Indication: PULMONARY ARTERIAL HYPERTENSION
     Dosage: 0.070 ?G/KG/MIN, CONTINUING
     Route: 058
     Dates: start: 20150529
  2. LETAIRIS [Suspect]
     Active Substance: AMBRISENTAN
     Indication: PRODUCT USED FOR UNKNOWN INDICATION
     Dosage: 5 MG, QD
     Route: 065
     Dates: start: 20130624
  3. ADCIRCA [Suspect]
     Active Substance: TADALAFIL
     Indication: PRODUCT USED FOR UNKNOWN INDICATION
     Route: 065
  4. REMODULIN [Suspect]
     Active Substance: TREPROSTINIL
     Dosage: 0.067 ?G/KG/MIN, UNK
     Route: 058

REACTIONS (6)
  - Infusion site erythema [Unknown]
  - Chest pain [Unknown]
  - Pain in extremity [Unknown]
  - Drug dose omission [Unknown]
  - Device occlusion [Unknown]
  - Infusion site pain [Unknown]

NARRATIVE: CASE EVENT DATE: 201512
